FAERS Safety Report 18922704 (Version 2)
Quarter: 2021Q2

REPORT INFORMATION
  Report Type: Spontaneous
  Country: US (occurrence: US)
  Receive Date: 20210222
  Receipt Date: 20210421
  Transmission Date: 20210717
  Serious: Yes (Death, Hospitalization, Other)
  Sender: FDA-Public Use
  Company Number: US-TAKEDA-2021TUS010519

PATIENT
  Sex: Female

DRUGS (5)
  1. GATTEX [Suspect]
     Active Substance: TEDUGLUTIDE\WATER
     Indication: SHORT-BOWEL SYNDROME
     Dosage: 2.84 MILLIGRAM, QD
     Route: 058
     Dates: start: 20140427, end: 202012
  2. GATTEX [Suspect]
     Active Substance: TEDUGLUTIDE\WATER
     Indication: SHORT-BOWEL SYNDROME
     Dosage: 2.84 MILLIGRAM, QD
     Route: 058
     Dates: start: 20140427, end: 202012
  3. GATTEX [Suspect]
     Active Substance: TEDUGLUTIDE\WATER
     Indication: SHORT-BOWEL SYNDROME
     Dosage: 2.84 MILLIGRAM, QD
     Route: 058
     Dates: start: 20140427, end: 202012
  4. GATTEX [Suspect]
     Active Substance: TEDUGLUTIDE\WATER
     Indication: SHORT-BOWEL SYNDROME
     Dosage: 2.84 MILLIGRAM, QD
     Route: 058
     Dates: start: 20140427, end: 202012
  5. LOMOTIL [LOPERAMIDE HYDROCHLORIDE] [Concomitant]
     Active Substance: LOPERAMIDE HYDROCHLORIDE
     Indication: SHORT-BOWEL SYNDROME
     Dosage: 2.5 MILLIGRAM
     Route: 065
     Dates: start: 2011, end: 202010

REACTIONS (9)
  - Death [Fatal]
  - Acute kidney injury [Not Recovered/Not Resolved]
  - Endocarditis [Not Recovered/Not Resolved]
  - Myocardial ischaemia [Not Recovered/Not Resolved]
  - Malnutrition [Not Recovered/Not Resolved]
  - Cardiac failure congestive [Not Recovered/Not Resolved]
  - Chronic kidney disease [Not Recovered/Not Resolved]
  - Pneumonia [Not Recovered/Not Resolved]
  - Staphylococcal infection [Not Recovered/Not Resolved]
